FAERS Safety Report 15153528 (Version 1)
Quarter: 2018Q3

REPORT INFORMATION
  Report Type: Report from Study
  Country: MX (occurrence: MX)
  Receive Date: 20180717
  Receipt Date: 20180717
  Transmission Date: 20181010
  Serious: Yes (Other)
  Sender: FDA-Public Use
  Company Number: PHHY2017MX121765

PATIENT
  Age: 37 Year
  Sex: Female
  Weight: 96 kg

DRUGS (7)
  1. CO?DIOVAN [Suspect]
     Active Substance: HYDROCHLOROTHIAZIDE\VALSARTAN
     Indication: PRE-ECLAMPSIA
     Dosage: 1 DF (HYDROCHLOROTHIAZIDE 12.5 MG, VALSARTAN 160 MG), QD
     Route: 048
     Dates: start: 20171226
  2. FOLIC ACID. [Concomitant]
     Active Substance: FOLIC ACID
     Indication: PREGNANCY
     Dosage: UNK
     Route: 048
     Dates: start: 201612, end: 201711
  3. VITAMIN E [Concomitant]
     Active Substance: .ALPHA.-TOCOPHEROL
     Indication: PRODUCT USED FOR UNKNOWN INDICATION
     Dosage: 1 DF, QD
     Route: 048
  4. CO?DIOVAN [Suspect]
     Active Substance: HYDROCHLOROTHIAZIDE\VALSARTAN
     Indication: HYPERTENSION
     Dosage: 1 DF (HYDROCHLOROTHIAZIDE 12.5 MG, VALSARTAN 160 MG), QD
     Route: 065
     Dates: start: 201704, end: 20170706
  5. ALDOMET [Concomitant]
     Active Substance: METHYLDOPA
     Dosage: 500 MG, QHS (DAILY)
     Route: 048
     Dates: start: 20171226
  6. ALDOMET [Concomitant]
     Active Substance: METHYLDOPA
     Indication: HYPERTENSION
     Dosage: 500 OT, UNK
     Route: 048
  7. FERRICOL [Concomitant]
     Indication: PRODUCT USED FOR UNKNOWN INDICATION
     Dosage: 1 DF, QD
     Route: 048
     Dates: end: 20170706

REACTIONS (11)
  - Blood pressure increased [Unknown]
  - Blood pressure increased [Recovered/Resolved]
  - Overweight [Unknown]
  - Macroprolactinaemia [Unknown]
  - Malaise [Not Recovered/Not Resolved]
  - Abortion [Unknown]
  - Maternal exposure during pregnancy [Unknown]
  - Thrombosis [Unknown]
  - Product use in unapproved indication [Unknown]
  - Complication of delivery [Unknown]
  - Normal newborn [Unknown]

NARRATIVE: CASE EVENT DATE: 201704
